FAERS Safety Report 8141190-7 (Version None)
Quarter: 2012Q1

REPORT INFORMATION
  Report Type: 
  Country: None (occurrence: None)
  Receive Date: 20120216
  Receipt Date: 20120206
  Transmission Date: 20120608
  Serious: Yes (Hospitalization, Other)
  Sender: FDA-Public Use
  Company Number: US-MYLANLABS-2012S1003227

PATIENT
  Sex: Female
  Weight: 73.94 kg

DRUGS (26)
  1. LIPITOR [Concomitant]
  2. LEVAQUIN [Concomitant]
  3. DUONEB [Concomitant]
     Dosage: Q4 TO 6H
  4. PRAVASTATIN [Concomitant]
  5. ASPIRIN [Concomitant]
  6. TORSEMIDE [Concomitant]
  7. ROCEPHIN [Concomitant]
  8. IMDUR [Concomitant]
  9. DIOVAN [Concomitant]
  10. GLIPIZIDE [Concomitant]
  11. COMBIVENT [Concomitant]
  12. PREDNISONE TAB [Concomitant]
     Dosage: FOR 5 DAYS
  13. ZANTAC [Concomitant]
  14. COLCHICINE [Concomitant]
  15. ISOSORBIDE DINITRATE [Concomitant]
  16. SOLU-MEDROL [Concomitant]
  17. FLEXERIL [Concomitant]
  18. AMITRIPTYLINE HCL [Concomitant]
  19. ADVAIR DISKUS 100/50 [Concomitant]
  20. XANAX [Concomitant]
  21. LIDODERM [Concomitant]
     Route: 062
  22. DETROL [Concomitant]
  23. DIGOXIN [Suspect]
     Route: 048
     Dates: start: 20070124, end: 20080805
  24. LORTAB [Concomitant]
  25. CEFTIN [Concomitant]
     Dosage: FOR 10 DAYS
  26. SPIRONOLACTONE [Concomitant]

REACTIONS (56)
  - DIABETES MELLITUS [None]
  - BLADDER PROLAPSE [None]
  - CHEST X-RAY ABNORMAL [None]
  - COUGH [None]
  - OSTEOPOROSIS [None]
  - MITRAL VALVE INCOMPETENCE [None]
  - ABDOMINAL PAIN UPPER [None]
  - ANAEMIA [None]
  - ASTHENIA [None]
  - CONDITION AGGRAVATED [None]
  - SPINAL COMPRESSION FRACTURE [None]
  - DYSPNOEA EXERTIONAL [None]
  - AORTIC VALVE INCOMPETENCE [None]
  - CARDIOMYOPATHY [None]
  - BRONCHIAL HYPERREACTIVITY [None]
  - HAEMATURIA [None]
  - LEFT ATRIAL DILATATION [None]
  - OEDEMA PERIPHERAL [None]
  - OXYGEN SUPPLEMENTATION [None]
  - SOMNOLENCE [None]
  - URINARY INCONTINENCE [None]
  - CARDIAC FAILURE CONGESTIVE [None]
  - PULMONARY HYPERTENSION [None]
  - CEREBRAL ATROPHY [None]
  - AORTIC STENOSIS [None]
  - CARDIOMEGALY [None]
  - INTERVERTEBRAL DISC DEGENERATION [None]
  - LUNG INFILTRATION [None]
  - OSTEOARTHRITIS [None]
  - BACK PAIN [None]
  - PAIN IN EXTREMITY [None]
  - RENAL FAILURE [None]
  - BLOOD PRESSURE DECREASED [None]
  - BRONCHITIS [None]
  - COMPUTERISED TOMOGRAM ABNORMAL [None]
  - EJECTION FRACTION DECREASED [None]
  - MUSCULOSKELETAL CHEST PAIN [None]
  - NAUSEA [None]
  - TRICUSPID VALVE INCOMPETENCE [None]
  - CONFUSIONAL STATE [None]
  - DECREASED APPETITE [None]
  - DYSPHONIA [None]
  - FALL [None]
  - RHINORRHOEA [None]
  - CHEST PAIN [None]
  - CARDIAC STRESS TEST ABNORMAL [None]
  - CONTUSION [None]
  - DYSPNOEA [None]
  - RHONCHI [None]
  - CARDIAC MURMUR [None]
  - ERYTHEMA [None]
  - GOUT [None]
  - HAEMOGLOBIN DECREASED [None]
  - RALES [None]
  - WHEEZING [None]
  - CONSTIPATION [None]
